FAERS Safety Report 6412050-4 (Version None)
Quarter: 2009Q4

REPORT INFORMATION
  Report Type: 
  Country: None (occurrence: None)
  Receive Date: 20091023
  Receipt Date: 20091014
  Transmission Date: 20100525
  Serious: Yes (Death)
  Sender: FDA-Public Use
  Company Number: BR-ASTRAZENECA-2009SE20436

PATIENT
  Age: 83 Year
  Sex: Female

DRUGS (6)
  1. SEROQUEL [Suspect]
     Route: 048
     Dates: start: 20070101
  2. VASOPRIL [Concomitant]
     Dosage: BID
  3. PROLOPA [Concomitant]
     Dosage: OD
  4. PROXIMAX [Concomitant]
  5. METAMUCIL [Concomitant]
  6. NATRILIX [Concomitant]

REACTIONS (1)
  - INFARCTION [None]
